FAERS Safety Report 8598427-X (Version None)
Quarter: 2012Q3

REPORT INFORMATION
  Report Type: 
  Country: None (occurrence: None)
  Receive Date: 20120816
  Receipt Date: 20120809
  Transmission Date: 20120928
  Serious: Yes (Hospitalization)
  Sender: FDA-Public Use
  Company Number: US-CELGENEUS-163-21880-12060210

PATIENT
  Sex: Male

DRUGS (1)
  1. REVLIMID [Suspect]
     Indication: MULTIPLE MYELOMA
     Dosage: 10 MILLIGRAM
     Route: 048
     Dates: start: 20120529, end: 20120806

REACTIONS (8)
  - DRY SKIN [None]
  - URINE COLOUR ABNORMAL [None]
  - AGITATION [None]
  - OEDEMA PERIPHERAL [None]
  - FEELING ABNORMAL [None]
  - DELUSION [None]
  - PRURITUS [None]
  - CONFUSIONAL STATE [None]
